FAERS Safety Report 5020743-9 (Version None)
Quarter: 2006Q2

REPORT INFORMATION
  Report Type: 
  Country: None (occurrence: None)
  Receive Date: 20060601
  Receipt Date: 20060519
  Transmission Date: 20061013
  Serious: Yes (Disabling, Other)
  Sender: FDA-Public Use
  Company Number: SUS1-2006-00298

PATIENT
  Age: 17 Year
  Sex: Male

DRUGS (3)
  1. PENTASA [Suspect]
     Indication: PROCTITIS HAEMORRHAGIC
     Dosage: 4 G DAILY, ORAL  ; 3 G DAILY, ORAL
     Route: 048
     Dates: start: 20001101, end: 20020917
  2. PENTASA [Suspect]
     Indication: PROCTITIS HAEMORRHAGIC
     Dosage: 4 G DAILY, ORAL  ; 3 G DAILY, ORAL
     Route: 048
     Dates: start: 20021201, end: 20030115
  3. PENTASA [Suspect]
     Indication: PROCTITIS HAEMORRHAGIC
     Dosage: 1 G DAILY, RECTAL
     Route: 054
     Dates: start: 20001101, end: 20020917

REACTIONS (7)
  - BLOOD CREATININE INCREASED [None]
  - INFLAMMATORY BOWEL DISEASE [None]
  - INJURY [None]
  - INTESTINAL FUNCTIONAL DISORDER [None]
  - IRON DEFICIENCY [None]
  - NEPHROPATHY TOXIC [None]
  - RENAL DISORDER [None]
